FAERS Safety Report 8187007-6 (Version None)
Quarter: 2012Q1

REPORT INFORMATION
  Report Type: 
  Country: None (occurrence: None)
  Receive Date: 20120306
  Receipt Date: 20120229
  Transmission Date: 20120608
  Serious: Yes (Other)
  Sender: FDA-Public Use
  Company Number: US-PFIZER INC-2012055449

PATIENT
  Sex: Female
  Weight: 80.726 kg

DRUGS (5)
  1. DETROL LA [Suspect]
     Indication: IRRITABLE BOWEL SYNDROME
     Dosage: 4 MG, DAILY
     Route: 048
  2. MACROBID [Suspect]
     Indication: KIDNEY INFECTION
  3. PREMARIN [Suspect]
     Indication: VULVOVAGINAL DRYNESS
     Dosage: UNK, 2X/WEEK
     Route: 067
     Dates: start: 20120101
  4. MACROBID [Suspect]
     Indication: CYSTITIS
     Dosage: 100 MG, 2X/DAY
     Route: 048
  5. CELEBREX [Concomitant]
     Indication: ARTHRITIS
     Dosage: 200 MG, ONCE A DAY
     Route: 048

REACTIONS (6)
  - ESCHERICHIA URINARY TRACT INFECTION [None]
  - DRUG INEFFECTIVE [None]
  - PYREXIA [None]
  - KIDNEY INFECTION [None]
  - CYSTITIS [None]
  - IRRITABLE BOWEL SYNDROME [None]
